FAERS Safety Report 18377586 (Version 1)
Quarter: 2020Q4

REPORT INFORMATION
  Report Type: Spontaneous
  Country: IT (occurrence: IT)
  Receive Date: 20201013
  Receipt Date: 20201013
  Transmission Date: 20210114
  Serious: Yes (Other)
  Sender: FDA-Public Use
  Company Number: IT-JNJFOC-20201002346

PATIENT

DRUGS (2)
  1. USTEKINUMAB [Suspect]
     Active Substance: USTEKINUMAB
     Indication: PSORIASIS
     Route: 058
  2. USTEKINUMAB [Suspect]
     Active Substance: USTEKINUMAB
     Indication: CROHN^S DISEASE

REACTIONS (11)
  - Respiratory tract infection [Unknown]
  - Influenza [Unknown]
  - Gingivitis [Unknown]
  - Dizziness [Unknown]
  - Fatigue [Unknown]
  - Drug eruption [Unknown]
  - Nausea [Unknown]
  - Dyspepsia [Unknown]
  - Musculoskeletal pain [Unknown]
  - Fungal infection [Unknown]
  - Hyperaesthesia [Unknown]
